FAERS Safety Report 23816728 (Version 1)
Quarter: 2024Q2

REPORT INFORMATION
  Report Type: Spontaneous
  Country: JP (occurrence: JP)
  Receive Date: 20240504
  Receipt Date: 20240504
  Transmission Date: 20240716
  Serious: Yes (Hospitalization)
  Sender: FDA-Public Use
  Company Number: JP-TEVA-VS-3191905

PATIENT
  Age: 58 Year
  Sex: Male

DRUGS (1)
  1. PREDNISOLONE [Suspect]
     Active Substance: PREDNISOLONE
     Indication: Product used for unknown indication
     Dosage: DOSAGE IS UNKNOWN
     Route: 065
     Dates: start: 1997, end: 200707

REACTIONS (2)
  - Arthritis bacterial [Unknown]
  - Osteonecrosis [Unknown]
